FAERS Safety Report 8017388-5 (Version None)
Quarter: 2012Q1

REPORT INFORMATION
  Report Type: 
  Country: None (occurrence: None)
  Receive Date: 20120102
  Receipt Date: 20111226
  Transmission Date: 20120608
  Serious: Yes (Hospitalization)
  Sender: FDA-Public Use
  Company Number: JP-ROCHE-1026307

PATIENT
  Sex: Male
  Weight: 63 kg

DRUGS (6)
  1. PREDNISOLONE [Concomitant]
     Dates: end: 20090912
  2. EPINASTINE HYDROCHLORIDE [Concomitant]
     Dates: start: 20090911
  3. UNIPHYL [Concomitant]
     Dates: start: 20091109
  4. PREDNISOLONE [Concomitant]
     Dates: start: 20090814
  5. ADVAIR DISKUS 100/50 [Concomitant]
     Dates: start: 20090616
  6. OMALIZUMAB [Suspect]
     Indication: ASTHMA
     Route: 058
     Dates: start: 20100116, end: 20100413

REACTIONS (1)
  - DEPRESSION [None]
